FAERS Safety Report 15266750 (Version 3)
Quarter: 2018Q3

REPORT INFORMATION
  Report Type: Report from Study
  Country: US (occurrence: US)
  Receive Date: 20180810
  Receipt Date: 20180824
  Transmission Date: 20181010
  Serious: Yes (Other)
  Sender: FDA-Public Use
  Company Number: US-JAZZ-2018-US-012020

PATIENT
  Sex: Female

DRUGS (46)
  1. XYREM [Suspect]
     Active Substance: SODIUM OXYBATE
     Indication: INSOMNIA
     Dosage: 2.25 G, BID
     Route: 048
     Dates: start: 201608, end: 201609
  2. TRAMADOL HCL [Concomitant]
     Active Substance: TRAMADOL HYDROCHLORIDE
     Dosage: UNK
     Dates: start: 20000501, end: 20170702
  3. FIORICET [Concomitant]
     Active Substance: ACETAMINOPHEN\BUTALBITAL\CAFFEINE
     Dosage: UNK
     Dates: start: 20141201, end: 20161031
  4. NAPROXEN. [Concomitant]
     Active Substance: NAPROXEN
     Dosage: UNK
     Dates: start: 20061001, end: 20160930
  5. ESTRACE [Concomitant]
     Active Substance: ESTRADIOL
  6. MUCINEX [Concomitant]
     Active Substance: GUAIFENESIN
     Dosage: 600 MG
  7. TRAMADOL HCL [Concomitant]
     Active Substance: TRAMADOL HYDROCHLORIDE
     Dosage: UNK
     Dates: start: 20171128, end: 20171128
  8. IRON [Concomitant]
     Active Substance: IRON
     Dosage: UNK
     Dates: start: 20160822, end: 20160825
  9. THYROSOL [Concomitant]
     Dosage: UNK
     Dates: start: 20160801, end: 20161031
  10. XYREM [Suspect]
     Active Substance: SODIUM OXYBATE
     Dosage: 4.5 G, BID
     Route: 048
     Dates: start: 201612
  11. LEXAPRO [Concomitant]
     Active Substance: ESCITALOPRAM OXALATE
     Dosage: UNK
     Dates: start: 20171109
  12. PETHIDINE [Concomitant]
     Active Substance: MEPERIDINE
     Dosage: 50 MG
     Dates: start: 20161012, end: 20161019
  13. COLACE [Concomitant]
     Active Substance: DOCUSATE SODIUM
     Dosage: UNK
     Dates: start: 20160822, end: 20160825
  14. LUNESTA [Concomitant]
     Active Substance: ESZOPICLONE
     Dosage: UNK
     Dates: start: 20160201, end: 20160830
  15. CYMBALTA [Concomitant]
     Active Substance: DULOXETINE HYDROCHLORIDE
     Dosage: UNK
     Dates: start: 20141201, end: 20171109
  16. VITAMIN D3 [Concomitant]
     Active Substance: CHOLECALCIFEROL
     Dosage: UNK
     Dates: start: 20110901
  17. PETHIDINE [Concomitant]
     Active Substance: MEPERIDINE
     Dosage: 100 MG
     Dates: end: 20170215
  18. IBUPROFEN. [Concomitant]
     Active Substance: IBUPROFEN
  19. PRIMIDONE. [Concomitant]
     Active Substance: PRIMIDONE
     Dosage: UNK
     Dates: start: 20180701
  20. PETHIDINE [Concomitant]
     Active Substance: MEPERIDINE
     Dosage: 50 MG
     Dates: start: 20160701, end: 20161115
  21. ASCORBIC ACID. [Concomitant]
     Active Substance: ASCORBIC ACID
     Dosage: UNK
     Dates: start: 20160822, end: 20161122
  22. MAGNESIUM OXIDE. [Concomitant]
     Active Substance: MAGNESIUM OXIDE
     Dosage: UNK
     Dates: start: 20160801, end: 20161122
  23. TRIPLE OMEGA COMPLEX 3?6?9 [Concomitant]
     Dosage: UNK
     Dates: start: 20160801, end: 20180701
  24. ATROVENT HFA [Concomitant]
     Active Substance: IPRATROPIUM BROMIDE
     Dosage: UNK
     Dates: start: 20151001, end: 20151206
  25. XYZAL [Concomitant]
     Active Substance: LEVOCETIRIZINE DIHYDROCHLORIDE
     Dosage: UNK
     Dates: start: 20141201
  26. SINGULAIR [Concomitant]
     Active Substance: MONTELUKAST SODIUM
     Dosage: UNK
     Dates: start: 20061201, end: 20161006
  27. DIPHENHYDRAMINE. [Concomitant]
     Active Substance: DIPHENHYDRAMINE
     Dosage: UNK
     Dates: end: 20160930
  28. XYREM [Suspect]
     Active Substance: SODIUM OXYBATE
     Dosage: DOSE ADJUSTMENT
     Route: 048
     Dates: start: 201609, end: 201612
  29. ARMOUR THYROID [Concomitant]
     Active Substance: THYROID, PORCINE
     Dosage: 90 MG
     Dates: start: 20141201, end: 20161031
  30. VITAMIN E AL [Concomitant]
     Dosage: UNK
     Dates: start: 20160801, end: 20170123
  31. NUVIGIL [Concomitant]
     Active Substance: ARMODAFINIL
     Dosage: UNK
     Dates: start: 20150201, end: 20160531
  32. XANAX [Concomitant]
     Active Substance: ALPRAZOLAM
     Dosage: UNK
     Dates: start: 20060401, end: 20170702
  33. MUCINEX [Concomitant]
     Active Substance: GUAIFENESIN
     Dosage: 1,200?60 MG
  34. METAXALONE. [Concomitant]
     Active Substance: METAXALONE
     Dosage: UNK
     Dates: start: 20061201, end: 20160930
  35. CURCUMA LONGA [Concomitant]
     Active Substance: HERBALS\TURMERIC
     Dosage: UNK
     Dates: start: 20170212
  36. IODINE. [Concomitant]
     Active Substance: IODINE
     Dosage: UNK
     Dates: start: 20160801, end: 20170702
  37. CYCLOBENZAPRINE. [Concomitant]
     Active Substance: CYCLOBENZAPRINE
     Dosage: UNK
     Dates: start: 20160701, end: 20161006
  38. ASPIRIN 81 [Concomitant]
     Active Substance: ASPIRIN
     Dosage: UNK
     Dates: start: 20131001
  39. MELATONIN [Concomitant]
     Active Substance: MELATONIN
     Dosage: UNK
     Dates: start: 20110501
  40. SALBUTAMOL [Concomitant]
     Active Substance: ALBUTEROL
     Dosage: UNK
     Dates: start: 20030501, end: 20160831
  41. PARACETAMOL [Concomitant]
     Active Substance: ACETAMINOPHEN
  42. ROSUVASTATIN CALCIUM. [Concomitant]
     Active Substance: ROSUVASTATIN CALCIUM
     Dosage: UNK
     Dates: start: 20180129
  43. METAXALONE. [Concomitant]
     Active Substance: METAXALONE
     Dosage: UNK
     Dates: start: 20170701, end: 20170901
  44. DILAUDID [Concomitant]
     Active Substance: HYDROMORPHONE HYDROCHLORIDE
     Dosage: UNK
     Dates: start: 20170210, end: 20170213
  45. SILYBUM MARIANUM [Concomitant]
     Active Substance: DIETARY SUPPLEMENT\HERBALS\MILK THISTLE
     Dosage: UNK
     Dates: start: 20170101
  46. ARMOUR THYROID [Concomitant]
     Active Substance: THYROID, PORCINE
     Dosage: 60 MG
     Dates: start: 20161101

REACTIONS (2)
  - Polycythaemia [Not Recovered/Not Resolved]
  - Lung disorder [Not Recovered/Not Resolved]
